FAERS Safety Report 4330333-9 (Version None)
Quarter: 2004Q1

REPORT INFORMATION
  Report Type: 
  Country: None (occurrence: None)
  Receive Date: 20040329
  Receipt Date: 20040318
  Transmission Date: 20041129
  Serious: Yes (Other)
  Sender: FDA-Public Use
  Company Number: 2004018874

PATIENT
  Age: 75 Year
  Sex: Male
  Weight: 84 kg

DRUGS (5)
  1. AMLODIPINE [Suspect]
     Indication: HYPERTENSION
     Dosage: 5 MG (DAILY), ORAL
     Route: 048
     Dates: start: 20040210, end: 20040214
  2. METFORMIN HCL [Concomitant]
  3. CANDESARTAN (CANDESARTAN) [Concomitant]
  4. ATORVASTATIN (ATORVASTATIN) [Concomitant]
  5. ATENOLOL [Concomitant]

REACTIONS (1)
  - THROAT TIGHTNESS [None]
